FAERS Safety Report 9644520 (Version 2)
Quarter: 2013Q4

REPORT INFORMATION
  Report Type: Report from Study
  Country: CA (occurrence: CA)
  Receive Date: 20131025
  Receipt Date: 20131025
  Transmission Date: 20140711
  Serious: Yes (Other)
  Sender: FDA-Public Use
  Company Number: CA-ROCHE-1242236

PATIENT
  Age: 51 Year
  Sex: Female
  Weight: 109 kg

DRUGS (9)
  1. ACTEMRA [Suspect]
     Indication: RHEUMATOID ARTHRITIS
     Route: 042
     Dates: start: 20130319, end: 20130516
  2. PREDNISONE [Concomitant]
  3. INDAPAMIDE [Concomitant]
  4. TEMAZEPAM [Concomitant]
  5. VERAPAMIL [Concomitant]
  6. RANITIDINE [Concomitant]
  7. SERTRALINE [Concomitant]
  8. DIOVAN [Concomitant]
  9. SECTRAL [Concomitant]

REACTIONS (3)
  - Arthralgia [Not Recovered/Not Resolved]
  - Drug ineffective [Not Recovered/Not Resolved]
  - Influenza [Not Recovered/Not Resolved]
